FAERS Safety Report 11844669 (Version 6)
Quarter: 2016Q2

REPORT INFORMATION
  Report Type: Report from Study
  Country: JP (occurrence: JP)
  Receive Date: 20151217
  Receipt Date: 20160418
  Transmission Date: 20160815
  Serious: Yes (Hospitalization)
  Sender: FDA-Public Use
  Company Number: JP-BIOGEN-C201506121

PATIENT
  Age: 73 Year
  Sex: Male
  Weight: 68 kg

DRUGS (9)
  1. DUTASTERIDE. [Concomitant]
     Active Substance: DUTASTERIDE
     Route: 048
     Dates: start: 20151106, end: 20151127
  2. PRANLUKAST HYDRATE [Concomitant]
     Route: 048
     Dates: start: 20151120, end: 20151124
  3. BIIB037 [Suspect]
     Active Substance: ADUCANUMAB
     Indication: DEMENTIA ALZHEIMER^S TYPE
     Route: 041
     Dates: start: 20151125, end: 20151125
  4. FAMOTIDINE. [Concomitant]
     Active Substance: FAMOTIDINE
     Route: 048
     Dates: start: 20151126, end: 20151127
  5. LOTRIGA [Concomitant]
     Active Substance: OMEGA-3-ACID ETHYL ESTERS
     Route: 048
     Dates: start: 20150423, end: 20151127
  6. ROSUVASTATIN CALCIUM. [Concomitant]
     Active Substance: ROSUVASTATIN CALCIUM
     Route: 048
     Dates: start: 20150620, end: 20151127
  7. SILODOSIN [Concomitant]
     Active Substance: SILODOSIN
     Route: 048
     Dates: start: 20140913, end: 20151127
  8. RIVASTIGMINE. [Concomitant]
     Active Substance: RIVASTIGMINE
     Route: 062
     Dates: start: 20150713
  9. GARENOXACIN MESILATE HYDRATE [Concomitant]
     Route: 048
     Dates: start: 20151120, end: 20151124

REACTIONS (3)
  - Cholecystitis [Recovered/Resolved]
  - Cholangitis acute [Recovered/Resolved]
  - Bile duct stone [Recovered/Resolved]

NARRATIVE: CASE EVENT DATE: 20151127
